FAERS Safety Report 21972030 (Version 1)
Quarter: 2023Q1

REPORT INFORMATION
  Report Type: Spontaneous
  Country: US (occurrence: US)
  Receive Date: 20230209
  Receipt Date: 20230209
  Transmission Date: 20230417
  Serious: No
  Sender: FDA-Public Use
  Company Number: US-NEBO-PC009823

PATIENT
  Age: 41 Year
  Sex: Female
  Weight: 112 kg

DRUGS (1)
  1. MONOFERRIC [Suspect]
     Active Substance: FERRIC DERISOMALTOSE
     Indication: Product used for unknown indication
     Dosage: MIXED IN: 100ML NSS
     Route: 050
     Dates: start: 20230130, end: 20230130

REACTIONS (1)
  - Lip pruritus [Recovered/Resolved]

NARRATIVE: CASE EVENT DATE: 20230130
